FAERS Safety Report 20144148 (Version 2)
Quarter: 2022Q1

REPORT INFORMATION
  Report Type: Report from Study
  Country: US (occurrence: US)
  Receive Date: 20211203
  Receipt Date: 20220114
  Transmission Date: 20220423
  Serious: Yes (Hospitalization)
  Sender: FDA-Public Use
  Company Number: US-BIOVITRUM-2021US11455

PATIENT
  Sex: Female

DRUGS (15)
  1. SYNAGIS [Suspect]
     Active Substance: PALIVIZUMAB
     Indication: Antiviral prophylaxis
     Route: 030
  2. SYNAGIS [Suspect]
     Active Substance: PALIVIZUMAB
     Route: 030
  3. PULMICORT TURBUHALER [Concomitant]
     Active Substance: BUDESONIDE
  4. LACTULOSE [Concomitant]
     Active Substance: LACTULOSE
  5. ATENOLOL [Concomitant]
     Active Substance: ATENOLOL
  6. BACTRIM [Concomitant]
     Active Substance: SULFAMETHOXAZOLE\TRIMETHOPRIM
  7. ZOVIRAX [Concomitant]
     Active Substance: ACYCLOVIR
  8. TOBRAMYCIN [Concomitant]
     Active Substance: TOBRAMYCIN
  9. NEXIUM [Concomitant]
     Active Substance: ESOMEPRAZOLE MAGNESIUM
  10. SILDENAFIL [Concomitant]
     Active Substance: SILDENAFIL
  11. GABAPENTIN [Concomitant]
     Active Substance: GABAPENTIN
  12. LEVOTHYROXINE SODIUM [Concomitant]
     Active Substance: LEVOTHYROXINE SODIUM
  13. CLONAZEPAM [Concomitant]
     Active Substance: CLONAZEPAM
  14. BUMEX [Concomitant]
     Active Substance: BUMETANIDE
  15. BACLOFEN [Concomitant]
     Active Substance: BACLOFEN

REACTIONS (3)
  - Urinary tract infection [Unknown]
  - Pyrexia [Unknown]
  - Product dose omission issue [Unknown]
